FAERS Safety Report 10088857 (Version 1)
Quarter: 2014Q2

REPORT INFORMATION
  Report Type: Spontaneous
  Country: US (occurrence: US)
  Receive Date: 20140421
  Receipt Date: 20140421
  Transmission Date: 20141212
  Serious: Yes (Other)
  Sender: FDA-Public Use
  Company Number: US-JNJFOC-20140407742

PATIENT
  Sex: 0

DRUGS (2)
  1. LEVAQUIN [Suspect]
     Indication: PRODUCT USED FOR UNKNOWN INDICATION
     Route: 065
  2. PREDNISONE [Suspect]
     Indication: POLYMYALGIA RHEUMATICA
     Route: 065

REACTIONS (3)
  - Tendonitis [Unknown]
  - Polymyalgia rheumatica [Unknown]
  - Blood glucose increased [Unknown]
